FAERS Safety Report 24303224 (Version 1)
Quarter: 2024Q3

REPORT INFORMATION
  Report Type: Spontaneous
  Country: US (occurrence: None)
  Receive Date: 20240909
  Receipt Date: 20240909
  Transmission Date: 20241017
  Serious: Yes (Hospitalization)
  Sender: Public
  Company Number: None

PATIENT
  Sex: Male

DRUGS (1)
  1. SPRYCEL [Suspect]
     Active Substance: DASATINIB
     Indication: Philadelphia positive chronic myeloid leukaemia
     Dosage: OTHER QUANTITY : 1 TABLET (100 MG TOTAL);?OTHER FREQUENCY : DAILY MAY TAKE WITH OR WITHOUT FOOD;?
     Route: 048
     Dates: start: 20211006

REACTIONS (2)
  - Hospitalisation [None]
  - Therapy interrupted [None]
